FAERS Safety Report 8775832 (Version 1)
Quarter: 2012Q4

REPORT INFORMATION
  Report Type: 
  Country: US (occurrence: US)
  Receive Date: 20120910
  Receipt Date: 20120910
  Transmission Date: 20130627
  Serious: No
  Sender: FDA-Public Use
  Company Number: US-PFIZER INC-2012220789

PATIENT
  Sex: Female

DRUGS (1)
  1. ADVIL [Suspect]
     Indication: ARTHRITIS
     Dosage: 200 mg, 2x/day
     Route: 048
     Dates: start: 20120902, end: 201209

REACTIONS (4)
  - Dysgeusia [Unknown]
  - Eye discharge [Unknown]
  - Rhinorrhoea [Unknown]
  - Cough [Unknown]
